FAERS Safety Report 5533403-2 (Version None)
Quarter: 2007Q4

REPORT INFORMATION
  Report Type: 
  Country: None (occurrence: None)
  Receive Date: 20071204
  Receipt Date: 20071121
  Transmission Date: 20080405
  Serious: Yes (Other)
  Sender: FDA-Public Use
  Company Number: US-RANBAXY-2007RR-11634

PATIENT

DRUGS (3)
  1. LISINOPRIL [Suspect]
     Dosage: 10 MG, QD
  2. LASIX [Suspect]
     Dosage: 20 MG, QD
  3. LASIX [Suspect]
     Dosage: 60 MG, QD

REACTIONS (1)
  - GLOMERULONEPHRITIS MINIMAL LESION [None]
